FAERS Safety Report 18137952 (Version 5)
Quarter: 2022Q3

REPORT INFORMATION
  Report Type: Report from Study
  Country: JP (occurrence: JP)
  Receive Date: 20200812
  Receipt Date: 20220815
  Transmission Date: 20221027
  Serious: Yes (Other)
  Sender: FDA-Public Use
  Company Number: JP-ONO-2020JP018463

PATIENT
  Age: 82 Year
  Sex: Female
  Weight: 43.9 kg

DRUGS (19)
  1. ETELCALCETIDE [Suspect]
     Active Substance: ETELCALCETIDE
     Indication: Hyperparathyroidism secondary
     Dosage: 2.5 MILLIGRAM, Q56H
     Route: 010
     Dates: start: 20190902, end: 20210308
  2. ETELCALCETIDE [Suspect]
     Active Substance: ETELCALCETIDE
     Dosage: 2.5 MILLIGRAM, Q56H
     Route: 010
     Dates: start: 20210310
  3. DARBEPOETIN ALFA [Concomitant]
     Active Substance: DARBEPOETIN ALFA
     Dosage: 10 MICROGRAM, QWK
     Route: 065
     Dates: start: 20190823, end: 20191008
  4. DARBEPOETIN ALFA [Concomitant]
     Active Substance: DARBEPOETIN ALFA
     Dosage: 20 MICROGRAM, QWK
     Route: 065
     Dates: start: 20191009, end: 20200214
  5. DARBEPOETIN ALFA [Concomitant]
     Active Substance: DARBEPOETIN ALFA
     Dosage: 10 MICROGRAM, QWK
     Route: 065
     Dates: start: 20200221, end: 20211217
  6. DARBEPOETIN ALFA [Concomitant]
     Active Substance: DARBEPOETIN ALFA
     Dosage: 5 MICROGRAM, QWK
     Route: 065
     Dates: start: 20211224, end: 20220506
  7. ROCALTROL [Concomitant]
     Active Substance: CALCITRIOL
     Dosage: 0.5 MICROGRAM, QWK
     Route: 065
     Dates: start: 20190515, end: 20191028
  8. CALCITRIOL [Concomitant]
     Active Substance: CALCITRIOL
     Dosage: 0.5 MICROGRAM, QWK
     Route: 042
     Dates: start: 20191104, end: 20200110
  9. CALCITRIOL [Concomitant]
     Active Substance: CALCITRIOL
     Dosage: 0.5 MICROGRAM, Q84H
     Route: 042
     Dates: start: 20200113, end: 20200410
  10. CALCITRIOL [Concomitant]
     Active Substance: CALCITRIOL
     Dosage: 0.5 MICROGRAM, Q56H
     Route: 042
     Dates: start: 20200413, end: 20220408
  11. CALCITRIOL [Concomitant]
     Active Substance: CALCITRIOL
     Dosage: 0.5 MICROGRAM, QWK
     Route: 042
     Dates: start: 20220411
  12. FOSRENOL [Concomitant]
     Active Substance: LANTHANUM CARBONATE
     Dosage: 1500 MILLIGRAM, QD
     Route: 048
     Dates: end: 20210701
  13. FOSRENOL [Concomitant]
     Active Substance: LANTHANUM CARBONATE
     Dosage: 750 MILLIGRAM, QD
     Route: 048
     Dates: start: 20220702
  14. Fesin [Concomitant]
     Dosage: 40 MILLIGRAM, QWK
     Route: 042
     Dates: start: 20191122, end: 20200124
  15. Fesin [Concomitant]
     Dosage: 40 MILLIGRAM, QWK
     Route: 042
     Dates: start: 20210611, end: 20210813
  16. Fesin [Concomitant]
     Dosage: 40 MILLIGRAM, QWK
     Route: 042
     Dates: start: 20220610
  17. EPOETIN ALFA BS [Concomitant]
     Active Substance: ERYTHROPOIETIN
     Dosage: 2250 INTERNATIONAL UNIT, QWK
     Route: 065
     Dates: start: 20220513, end: 20220525
  18. EPOETIN ALFA BS [Concomitant]
     Active Substance: ERYTHROPOIETIN
     Dosage: 4500 INTERNATIONAL UNIT, QWK
     Route: 065
     Dates: start: 20220527, end: 20220706
  19. EPOETIN ALFA BS [Concomitant]
     Active Substance: ERYTHROPOIETIN
     Dosage: 6000 INTERNATIONAL UNIT, QWK
     Route: 065
     Dates: start: 20220708

REACTIONS (3)
  - Retinal artery occlusion [Recovering/Resolving]
  - Shunt stenosis [Recovered/Resolved]
  - Cholelithiasis [Recovering/Resolving]

NARRATIVE: CASE EVENT DATE: 20200228
